FAERS Safety Report 7235615-9 (Version None)
Quarter: 2011Q1

REPORT INFORMATION
  Report Type: 
  Country: None (occurrence: None)
  Receive Date: 20110120
  Receipt Date: 20110114
  Transmission Date: 20110831
  Serious: Yes (Life-Threatening, Hospitalization)
  Sender: FDA-Public Use
  Company Number: US-EISAI INC-E7389-01118-CLI-US

PATIENT
  Sex: Male
  Weight: 78 kg

DRUGS (2)
  1. ERLOTINIB [Concomitant]
     Indication: NON-SMALL CELL LUNG CANCER
     Route: 048
     Dates: start: 20101201, end: 20101215
  2. E7389 (BOLD) [Suspect]
     Indication: NON-SMALL CELL LUNG CANCER
     Route: 041
     Dates: start: 20101130, end: 20101130

REACTIONS (3)
  - DYSPNOEA [None]
  - PNEUMONIA ASPIRATION [None]
  - OBSTRUCTIVE AIRWAYS DISORDER [None]
